FAERS Safety Report 23358672 (Version 1)
Quarter: 2024Q1

REPORT INFORMATION
  Report Type: Spontaneous
  Country: FR (occurrence: FR)
  Receive Date: 20240102
  Receipt Date: 20240102
  Transmission Date: 20240409
  Serious: Yes (Death)
  Sender: FDA-Public Use
  Company Number: None

PATIENT
  Age: 68 Year
  Sex: Female
  Weight: 74 kg

DRUGS (1)
  1. RITUXIMAB [Suspect]
     Active Substance: RITUXIMAB
     Indication: Neuromyelitis optica spectrum disorder
     Dosage: 1 G, CYCLIC EVERY 6 MONTHS
     Route: 042
     Dates: start: 201510

REACTIONS (3)
  - Secondary immunodeficiency [Fatal]
  - COVID-19 [Fatal]
  - Off label use [Unknown]

NARRATIVE: CASE EVENT DATE: 20151001
